FAERS Safety Report 13398102 (Version 2)
Quarter: 2017Q2

REPORT INFORMATION
  Report Type: Spontaneous
  Country: US (occurrence: US)
  Receive Date: 20170403
  Receipt Date: 20170407
  Transmission Date: 20170830
  Serious: No
  Sender: FDA-Public Use
  Company Number: US-009507513-1704USA000540

PATIENT
  Sex: Female

DRUGS (1)
  1. NEXPLANON [Suspect]
     Active Substance: ETONOGESTREL
     Indication: CONTRACEPTION
     Dosage: UNK
     Route: 059
     Dates: start: 20130206

REACTIONS (5)
  - Migration of implanted drug [Recovered/Resolved]
  - Menstruation irregular [Unknown]
  - Weight increased [Unknown]
  - Incorrect drug administration duration [Recovered/Resolved]
  - Complication associated with device [Recovered/Resolved]
